FAERS Safety Report 13006438 (Version 1)
Quarter: 2016Q4

REPORT INFORMATION
  Report Type: Spontaneous
  Country: JP (occurrence: JP)
  Receive Date: 20161207
  Receipt Date: 20161207
  Transmission Date: 20170207
  Serious: Yes (Hospitalization, Other)
  Sender: FDA-Public Use
  Company Number: JP-009507513-1609JPN003198

PATIENT
  Age: 12 Year
  Sex: Female
  Weight: 34.5 kg

DRUGS (12)
  1. LENOGRASTIM [Concomitant]
     Active Substance: LENOGRASTIM
     Dosage: 150 MICROGRAM, UNK
     Route: 051
     Dates: start: 20151102, end: 20151201
  2. GLUTATHIONE [Concomitant]
     Active Substance: GLUTATHIONE
     Indication: PROPHYLAXIS
     Dosage: 200 MG, UNK
     Route: 051
     Dates: start: 20151112
  3. CANCIDAS [Suspect]
     Active Substance: CASPOFUNGIN ACETATE
     Indication: BRONCHOPULMONARY ASPERGILLOSIS
     Dosage: 50 MG, QD
     Route: 041
     Dates: start: 20151102, end: 20151221
  4. MORPHINE HYDROCHLORIDE [Suspect]
     Active Substance: MORPHINE HYDROCHLORIDE
     Indication: PAIN
     Dosage: TOTAL DAILY DOSE: 120 MG (DIVIDED DOSE, FREQUENCY UNKNOWN)
     Route: 051
     Dates: start: 20151221, end: 20151224
  5. VANCOMYCIN HYDROCHLORIDE. [Concomitant]
     Active Substance: VANCOMYCIN HYDROCHLORIDE
     Dosage: 3 MG, UNK
     Route: 051
     Dates: end: 20151130
  6. AMMONIUM GLYCYRRHIZATE (+) CYSTEINE (+) GLYCINE [Concomitant]
     Dosage: 40 MG, QD
     Route: 051
  7. PREDNISOLONE. [Suspect]
     Active Substance: PREDNISOLONE
     Indication: PROPHYLAXIS AGAINST GRAFT VERSUS HOST DISEASE
     Dosage: TOTAL DAILY DOSE: 72MG (DIVIDED DOSE FREQUENCY UNKNOWN)
     Route: 048
     Dates: start: 20151118
  8. TOBRAMYCIN. [Concomitant]
     Active Substance: TOBRAMYCIN
     Indication: VIRAL HAEMORRHAGIC CYSTITIS
     Dosage: 180 MG, UNK
     Route: 051
     Dates: start: 20151120, end: 20151203
  9. IMIPENEM AND CILASTATIN [Concomitant]
     Active Substance: CILASTATIN SODIUM\IMIPENEM
     Dosage: 3 G, UNK
     Route: 051
     Dates: start: 20151120, end: 20151203
  10. ACYCLOVIR. [Concomitant]
     Active Substance: ACYCLOVIR
     Indication: INFECTION PROPHYLAXIS
     Dosage: 500 MG, UNK
     Route: 051
     Dates: start: 20151112
  11. PLATELETS [Concomitant]
     Active Substance: HUMAN PLATELET, ALLOGENIC
     Dosage: 10 MG, UNK
     Route: 051
  12. TACROLIMUS. [Concomitant]
     Active Substance: TACROLIMUS
     Indication: TRANSPLANT
     Dosage: 1 MG, UNK
     Route: 051
     Dates: start: 20151117, end: 20151209

REACTIONS (4)
  - Acute graft versus host disease [Recovering/Resolving]
  - Pancreatitis acute [Recovered/Resolved]
  - Pneumonia [Recovering/Resolving]
  - Stem cell transplant [Unknown]

NARRATIVE: CASE EVENT DATE: 20151118
